FAERS Safety Report 19760944 (Version 1)
Quarter: 2021Q3

REPORT INFORMATION
  Report Type: Spontaneous
  Country: US (occurrence: US)
  Receive Date: 20210829
  Receipt Date: 20210829
  Transmission Date: 20211014
  Serious: Yes (Hospitalization)
  Sender: FDA-Public Use
  Company Number: None

PATIENT
  Age: 86 Year
  Sex: Male
  Weight: 76 kg

DRUGS (3)
  1. CASIRIVIMAB AND IMDEVIMAB [Suspect]
     Active Substance: CASIRIVIMAB\IMDEVIMAB
     Indication: COVID-19
     Dosage: ?          OTHER FREQUENCY:ONE TIME;?
     Route: 041
  2. SPIRONOLACTONE 50 MG [Concomitant]
     Active Substance: SPIRONOLACTONE
     Dates: start: 20210827, end: 20210829
  3. NIFEDIPINE XL 30 MG [Concomitant]
     Dates: start: 20210820, end: 20210829

REACTIONS (3)
  - Infusion related reaction [None]
  - Dyspnoea [None]
  - Wheezing [None]

NARRATIVE: CASE EVENT DATE: 20210828
